FAERS Safety Report 8241700-5 (Version None)
Quarter: 2012Q1

REPORT INFORMATION
  Report Type: 
  Country: None (occurrence: None)
  Receive Date: 20120328
  Receipt Date: 20120323
  Transmission Date: 20120608
  Serious: Yes (Death)
  Sender: FDA-Public Use
  Company Number: US-ABBOTT-12P-163-0914622-00

PATIENT
  Sex: Male
  Weight: 70.824 kg

DRUGS (7)
  1. ZEMPLAR [Suspect]
     Indication: RENAL FAILURE CHRONIC
     Dates: start: 20100901, end: 20111021
  2. ZEMPLAR [Suspect]
     Indication: HYPERPARATHYROIDISM SECONDARY
  3. METOLAZONE [Concomitant]
     Indication: OEDEMA
  4. METOPROLOL SUCCINATE [Concomitant]
     Indication: CORONARY ARTERY DISEASE
  5. BUMEX [Concomitant]
     Indication: OEDEMA
  6. IMDUR [Concomitant]
     Indication: CARDIAC FAILURE CONGESTIVE
  7. IMDUR [Concomitant]
     Indication: CORONARY ARTERY DISEASE

REACTIONS (1)
  - DEATH [None]
